FAERS Safety Report 4409607-9 (Version None)
Quarter: 2004Q3

REPORT INFORMATION
  Report Type: 
  Country: None (occurrence: None)
  Receive Date: 20040723
  Receipt Date: 20030531
  Transmission Date: 20050211
  Serious: Yes (Disabling)
  Sender: FDA-Public Use
  Company Number: US-JNJFOC-20030604670

PATIENT
  Sex: Male

DRUGS (1)
  1. IMODIUM A-D [Suspect]
     Indication: DIARRHOEA
     Dosage: ORAL
     Route: 048

REACTIONS (2)
  - DEHYDRATION [None]
  - FAECES DISCOLOURED [None]
